FAERS Safety Report 4448705-0 (Version None)
Quarter: 2004Q3

REPORT INFORMATION
  Report Type: 
  Country: None (occurrence: None)
  Receive Date: 20040909
  Receipt Date: 20040819
  Transmission Date: 20050211
  Serious: Yes (Other)
  Sender: FDA-Public Use
  Company Number: A03200402835

PATIENT
  Age: 33 Year
  Sex: Female

DRUGS (1)
  1. PLAQUENIL [Suspect]

REACTIONS (3)
  - ACUTE SINUSITIS [None]
  - BRONCHITIS ACUTE [None]
  - NEUTROPENIA [None]
